FAERS Safety Report 14336569 (Version 1)
Quarter: 2017Q4

REPORT INFORMATION
  Report Type: Spontaneous
  Country: IT (occurrence: IT)
  Receive Date: 20171229
  Receipt Date: 20171229
  Transmission Date: 20180321
  Serious: Yes (Other)
  Sender: FDA-Public Use
  Company Number: IT-CIPLA LTD.-2017IT29151

PATIENT

DRUGS (5)
  1. AMLODIPINE [Suspect]
     Active Substance: AMLODIPINE BESYLATE
     Indication: PRODUCT USED FOR UNKNOWN INDICATION
     Dosage: 200 MG, WEEKLY, IN TOTAAL
     Route: 048
     Dates: start: 20171207, end: 20171207
  2. ALCOVER [Suspect]
     Active Substance: SODIUM OXYBATE
     Indication: PRODUCT USED FOR UNKNOWN INDICATION
     Dosage: 2 DF, WEEKLY, IN TOTAL, DOSAGE FORM: UNSPECIFIED
     Route: 048
     Dates: start: 20171207, end: 20171207
  3. LORAZEPAM. [Suspect]
     Active Substance: LORAZEPAM
     Indication: PRODUCT USED FOR UNKNOWN INDICATION
     Dosage: 75 MG, WEEKLY, IN TOTAL
     Route: 048
     Dates: start: 20171207, end: 20171207
  4. INVEGA [Suspect]
     Active Substance: PALIPERIDONE
     Indication: PRODUCT USED FOR UNKNOWN INDICATION
     Dosage: 84 MG, WEEKLY, DOSAGE FORM: OROS (ORAL OSMOTIC) THERAPEUTIC SYSTEM TABLET ; IN TOTAL
     Route: 048
     Dates: start: 20171207, end: 20171207
  5. CAMPRAL [Suspect]
     Active Substance: ACAMPROSATE CALCIUM
     Indication: PRODUCT USED FOR UNKNOWN INDICATION
     Dosage: 10 G, WEEKLY, IN TOTAL, DOSAGE FORM: UNSPECIFIED
     Route: 048
     Dates: start: 20171207, end: 20171207

REACTIONS (4)
  - Intentional overdose [Unknown]
  - Intentional self-injury [Unknown]
  - Coma [Unknown]
  - Hypotension [Unknown]

NARRATIVE: CASE EVENT DATE: 20171207
